FAERS Safety Report 14242821 (Version 1)
Quarter: 2017Q4

REPORT INFORMATION
  Report Type: Spontaneous
  Country: US (occurrence: US)
  Receive Date: 20171201
  Receipt Date: 20171201
  Transmission Date: 20180321
  Serious: No
  Sender: FDA-Public Use
  Company Number: US-APOTEX-2016AP016217

PATIENT
  Age: 27 Year
  Sex: Male
  Weight: 82 kg

DRUGS (1)
  1. NICOTINE TRANSDERMAL SYSTEM [Suspect]
     Active Substance: NICOTINE
     Indication: SMOKING CESSATION THERAPY
     Dosage: UNK
     Route: 065
     Dates: start: 201407

REACTIONS (2)
  - Expired product administered [Unknown]
  - Application site pruritus [Unknown]

NARRATIVE: CASE EVENT DATE: 201407
